FAERS Safety Report 4477533-5 (Version None)
Quarter: 2004Q4

REPORT INFORMATION
  Report Type: 
  Country: None (occurrence: None)
  Receive Date: 20041012
  Receipt Date: 20040923
  Transmission Date: 20050328
  Serious: No
  Sender: FDA-Public Use
  Company Number: THYM-10293

PATIENT
  Age: 45 Year
  Sex: Male
  Weight: 90.4 kg

DRUGS (12)
  1. THYMOGLOBULIN [Suspect]
     Indication: RENAL TRANSPLANT
     Dosage: 1.375 MG/KG QD IV
     Route: 042
     Dates: start: 20040818, end: 20040823
  2. PROGRAF [Suspect]
     Indication: RENAL TRANSPLANT
     Dosage: 4 MG BID
     Dates: start: 20040818
  3. MYCOPHENOLATE MOFETIL [Suspect]
     Indication: RENAL TRANSPLANT
     Dosage: 1000 MG BID
     Dates: start: 20040818
  4. CARDIAZEM [Concomitant]
  5. BACTRIM [Concomitant]
  6. COLACE [Concomitant]
  7. NYSTATIN [Concomitant]
  8. POTASSIUM PHOSPHATES [Concomitant]
  9. PROTONIX [Concomitant]
  10. NEPHROVITE [Concomitant]
  11. VICODIN [Concomitant]
  12. LOPRESSOR [Concomitant]

REACTIONS (4)
  - ANAEMIA [None]
  - COMPLICATIONS OF TRANSPLANTED KIDNEY [None]
  - LEUKOPENIA [None]
  - RENAL TUBULAR NECROSIS [None]
